FAERS Safety Report 4357497-5 (Version None)
Quarter: 2004Q2

REPORT INFORMATION
  Report Type: 
  Country: None (occurrence: None)
  Receive Date: 20040507
  Receipt Date: 20040225
  Transmission Date: 20050107
  Serious: Yes (Hospitalization)
  Sender: FDA-Public Use
  Company Number: 6007482

PATIENT
  Age: 74 Year
  Sex: Female

DRUGS (8)
  1. BISOPROLOL FUMARATE [Suspect]
     Indication: CARDIAC FAILURE CONGESTIVE
     Dosage: 10 MG, 1 IN 1 D) ORAL
     Route: 048
     Dates: start: 20030325
  2. ENALAPRIL MALEATE [Suspect]
     Dosage: 10 MG (5 MG, 2 IN 1 D) ORAL
     Route: 048
     Dates: start: 20030912
  3. LEVOTHYROXINE SODIUM [Concomitant]
  4. ACETYLSALICYLIC ACID SRT [Concomitant]
  5. METILDIGOXIN (METILDIGOXIN) [Concomitant]
  6. NICERGOLINE (NICERGOLINE) [Concomitant]
  7. PERAZINE DIMALEATE (PERAZINE DIMALEATE) [Concomitant]
  8. HYDROCHLOROTHIAZIDE [Concomitant]

REACTIONS (8)
  - BLOOD PRESSURE DIASTOLIC INCREASED [None]
  - BLOOD PRESSURE SYSTOLIC INCREASED [None]
  - DRUG ABUSER [None]
  - SINUS BRADYCARDIA [None]
  - SYNCOPE [None]
  - VENTRICULAR ARRHYTHMIA [None]
  - VENTRICULAR EXTRASYSTOLES [None]
  - VERTIGO [None]
